FAERS Safety Report 18156407 (Version 1)
Quarter: 2020Q3

REPORT INFORMATION
  Report Type: Spontaneous
  Country: US (occurrence: US)
  Receive Date: 20200816
  Receipt Date: 20200816
  Transmission Date: 20201103
  Serious: No
  Sender: FDA-Public Use
  Company Number: None

PATIENT
  Age: 66 Year
  Sex: Female
  Weight: 69.75 kg

DRUGS (5)
  1. VIT D [Concomitant]
     Active Substance: VITAMIN D NOS
  2. SYNTHROID [Concomitant]
     Active Substance: LEVOTHYROXINE SODIUM
  3. LEVEMIR FLEXTOUCH PEN [Concomitant]
  4. FISH OIL [Concomitant]
     Active Substance: FISH OIL
  5. LEVEMIR [Suspect]
     Active Substance: INSULIN DETEMIR
     Indication: TYPE 2 DIABETES MELLITUS
     Dosage: ?          OTHER STRENGTH:UNITS/ML;QUANTITY:15 UNITS;OTHER FREQUENCY:IN EVENING;OTHER ROUTE:INJECTION?

REACTIONS (2)
  - Regurgitation [None]
  - Gastrooesophageal reflux disease [None]

NARRATIVE: CASE EVENT DATE: 20200807
